FAERS Safety Report 13470961 (Version 1)
Quarter: 2017Q2

REPORT INFORMATION
  Report Type: Spontaneous
  Country: GB (occurrence: GB)
  Receive Date: 20170424
  Receipt Date: 20170424
  Transmission Date: 20170830
  Serious: Yes (Other)
  Sender: FDA-Public Use
  Company Number: GB-ROCHE-1921160

PATIENT
  Age: 40 Year
  Sex: Female

DRUGS (6)
  1. EPIRUBICIN [Concomitant]
     Active Substance: EPIRUBICIN
  2. PERJETA [Suspect]
     Active Substance: PERTUZUMAB
     Indication: HER-2 POSITIVE BREAST CANCER
     Dosage: DOSAGE: AS PER SPC
     Route: 065
     Dates: start: 201612, end: 201702
  3. DOCETAXEL. [Concomitant]
     Active Substance: DOCETAXEL
  4. FLUOROURACIL. [Concomitant]
     Active Substance: FLUOROURACIL
  5. HERCEPTIN [Suspect]
     Active Substance: TRASTUZUMAB
     Indication: HER-2 POSITIVE BREAST CANCER
     Route: 065
  6. CYCLOPHOSPHAMIDE. [Concomitant]
     Active Substance: CYCLOPHOSPHAMIDE

REACTIONS (3)
  - Lymphatic system neoplasm [Unknown]
  - Treatment failure [Unknown]
  - Malignant neoplasm of thorax [Unknown]

NARRATIVE: CASE EVENT DATE: 201703
